FAERS Safety Report 12777255 (Version 2)
Quarter: 2016Q3

REPORT INFORMATION
  Report Type: Spontaneous
  Country: IT (occurrence: IT)
  Receive Date: 20160924
  Receipt Date: 20160927
  Transmission Date: 20161109
  Serious: Yes (Other)
  Sender: FDA-Public Use
  Company Number: IT-ACCORD-044191

PATIENT
  Age: 70 Year
  Sex: Female
  Weight: 68 kg

DRUGS (6)
  1. SEREUPIN [Concomitant]
     Active Substance: PAROXETINE HYDROCHLORIDE
     Indication: DEPRESSION
     Route: 048
  2. TORVAST [Concomitant]
     Active Substance: ATORVASTATIN
     Indication: HYPERCHOLESTEROLAEMIA
     Route: 048
  3. ENALAPRIL MALEATE/HYDROCHLOROTHIAZIDE [Concomitant]
     Indication: HYPERTENSION
     Route: 048
  4. PACLITAXEL ACCORD [Suspect]
     Active Substance: PACLITAXEL
     Indication: BREAST NEOPLASM
     Route: 042
     Dates: start: 20160601, end: 20160623
  5. INDERAL [Concomitant]
     Active Substance: PROPRANOLOL HYDROCHLORIDE
     Indication: HYPERTENSION
     Route: 048
  6. TICLOPIDINE [Concomitant]
     Active Substance: TICLOPIDINE
     Indication: MYOCARDIAL ISCHAEMIA
     Route: 048

REACTIONS (3)
  - Hyperaemia [Recovered/Resolved]
  - Cough [Recovered/Resolved]
  - Throat irritation [Recovered/Resolved]

NARRATIVE: CASE EVENT DATE: 20160623
